FAERS Safety Report 13269724 (Version 2)
Quarter: 2017Q1

REPORT INFORMATION
  Report Type: Spontaneous
  Country: JP (occurrence: JP)
  Receive Date: 20170224
  Receipt Date: 20170228
  Transmission Date: 20170428
  Serious: Yes (Death, Other)
  Sender: FDA-Public Use
  Company Number: JP-PFIZER INC-2017079788

PATIENT
  Age: 70 Year
  Sex: Female

DRUGS (6)
  1. OXALIPLATIN. [Suspect]
     Active Substance: OXALIPLATIN
     Indication: COLON CANCER METASTATIC
     Dosage: UNK, CYCLIC, EVERY 2 WEEKS
  2. FLUOROURACIL. [Suspect]
     Active Substance: FLUOROURACIL
     Indication: COLON CANCER METASTATIC
     Dosage: UNK, CYCLIC. EVERY 2 WEEKS
  3. CALCIUM FOLINATE [Suspect]
     Active Substance: LEUCOVORIN CALCIUM
     Dosage: UNK (EVERY 3 WEEKS)
  4. OXALIPLATIN. [Suspect]
     Active Substance: OXALIPLATIN
     Dosage: UNK (EVERY 3 WEEKS)
  5. FLUOROURACIL. [Suspect]
     Active Substance: FLUOROURACIL
     Dosage: UNK, EVERY 3 WEEKS
  6. CALCIUM FOLINATE [Suspect]
     Active Substance: LEUCOVORIN CALCIUM
     Indication: COLON CANCER METASTATIC
     Dosage: UNK, CYCLIC EVERY 2 WEEKS

REACTIONS (1)
  - Leukoencephalopathy [Fatal]
